FAERS Safety Report 8880294 (Version 4)
Quarter: 2012Q4

REPORT INFORMATION
  Report Type: 
  Country: JP (occurrence: JP)
  Receive Date: 20121101
  Receipt Date: 20121218
  Transmission Date: 20130627
  Serious: Yes (Hospitalization, Other)
  Sender: FDA-Public Use
  Company Number: JP-PFIZER INC-2012269235

PATIENT
  Age: 66 Year
  Sex: Male
  Weight: 59 kg

DRUGS (30)
  1. IRINOTECAN HCL [Suspect]
     Indication: METASTATIC GASTRIC CANCER
     Dosage: 101 mg, 1x/day
     Route: 041
     Dates: start: 20120615, end: 20120615
  2. IRINOTECAN HCL [Suspect]
     Dosage: 101 mg, 1x/day
     Route: 041
     Dates: start: 20120629, end: 20120629
  3. IRINOTECAN HCL [Suspect]
     Dosage: 101 mg, 1x/day
     Route: 041
     Dates: start: 20120713, end: 20120713
  4. IRINOTECAN HCL [Suspect]
     Dosage: 101 mg, 1x/day
     Route: 041
     Dates: start: 20120727, end: 20120727
  5. IRINOTECAN HCL [Suspect]
     Dosage: 101 mg, 1x/day
     Route: 041
     Dates: start: 20120810, end: 20120810
  6. IRINOTECAN HCL [Suspect]
     Dosage: 101 mg, 1x/day
     Route: 041
     Dates: start: 20120824, end: 20120824
  7. IRINOTECAN HCL [Suspect]
     Dosage: 101 mg, 1x/day
     Route: 041
     Dates: start: 20120907, end: 20120907
  8. IRINOTECAN HCL [Suspect]
     Dosage: 101 mg, 1x/day
     Route: 041
     Dates: start: 20120921, end: 20120921
  9. IRINOTECAN HCL [Suspect]
     Dosage: 101 mg, 1x/day
     Route: 041
     Dates: start: 20121005, end: 20121005
  10. IRINOTECAN HCL [Suspect]
     Dosage: 80.8 mg, 1x/day
     Route: 041
     Dates: start: 20121024, end: 20121024
  11. MARUKO [Suspect]
     Indication: GASTRIC CANCER
     Dosage: 50.5 mg, 1x/day
     Route: 041
     Dates: start: 20120615, end: 20120615
  12. PLATINOL [Suspect]
     Dosage: 50.5 mg, 1x/day
     Route: 041
     Dates: start: 20120629, end: 20120629
  13. CISPLATIN [Suspect]
     Dosage: 50.5 mg, 1x/day
     Route: 041
     Dates: start: 20120713, end: 20120713
  14. CISPLATIN [Suspect]
     Dosage: 50.5 mg, 1x/day
     Route: 041
     Dates: start: 20120727, end: 20120727
  15. CISPLATIN [Suspect]
     Dosage: 50.5 mg, 1x/day
     Route: 041
     Dates: start: 20120810, end: 20120810
  16. CISPLATIN [Suspect]
     Dosage: 50.5 mg, 1x/day
     Route: 041
     Dates: start: 20120824, end: 20120824
  17. CISPLATIN [Suspect]
     Dosage: 50.5 mg, 1x/day
     Route: 041
     Dates: start: 20120907, end: 20120907
  18. CISPLATIN [Suspect]
     Dosage: 50.5 mg, 1x/day
     Route: 041
     Dates: start: 20120921, end: 20120921
  19. CISPLATIN [Suspect]
     Dosage: 50.5 mg, 1x/day
     Route: 041
     Dates: start: 20121005, end: 20121005
  20. CISPLATIN [Suspect]
     Dosage: 40.4 mg, 1x/day
     Route: 041
     Dates: start: 20121024, end: 20121024
  21. CALCIUM CARBONATE [Suspect]
     Indication: HYPOCALCAEMIA
     Dosage: UNK, 1 day
     Route: 048
     Dates: start: 20121022
  22. DEXAMETHASONE SODIUM PHOSPHATE [Concomitant]
     Dosage: UNK
     Dates: start: 20120615, end: 20121024
  23. ALOXI [Concomitant]
     Dosage: UNK
     Dates: start: 20120615, end: 20121024
  24. PRIMPERAN [Concomitant]
     Dosage: UNK
     Dates: start: 20120705
  25. PROMAC /JPN/ [Concomitant]
     Dosage: UNK
     Dates: start: 20120727
  26. DECADRON [Concomitant]
     Dosage: UNK
     Dates: start: 20120811
  27. RED CELLS CONCENTRATES-LEUKOCYTES REDUCED [Concomitant]
     Dosage: UNK
     Route: 042
     Dates: start: 20121005, end: 20121005
  28. PROEMEND [Concomitant]
     Dosage: UNK
     Dates: start: 20120629
  29. CALCICOL [Concomitant]
     Dosage: UNK
     Dates: start: 20121019, end: 20121022
  30. MAGNESIUM SULFATE [Concomitant]
     Dosage: UNK
     Dates: start: 20121019, end: 20121020

REACTIONS (5)
  - Haemoglobin decreased [Recovering/Resolving]
  - Hypocalcaemia [Recovered/Resolved]
  - Hypomagnesaemia [Recovered/Resolved]
  - Leukopenia [Unknown]
  - Neutropenia [Unknown]
